FAERS Safety Report 16315807 (Version 1)
Quarter: 2019Q2

REPORT INFORMATION
  Report Type: Spontaneous
  Country: US (occurrence: US)
  Receive Date: 20190515
  Receipt Date: 20190515
  Transmission Date: 20190711
  Serious: No
  Sender: FDA-Public Use
  Company Number: US-RIGEL PHARMACEUTICALS, INC.-2019FOS000047

PATIENT

DRUGS (1)
  1. TAVALISSE [Suspect]
     Active Substance: FOSTAMATINIB
     Indication: MALIGNANT NEOPLASM OF CHOROID
     Dosage: 100 MG, BID
     Route: 048

REACTIONS (2)
  - Off label use [Unknown]
  - Head discomfort [Unknown]
